FAERS Safety Report 24059794 (Version 1)
Quarter: 2024Q3

REPORT INFORMATION
  Report Type: Spontaneous
  Country: US (occurrence: None)
  Receive Date: 20240704
  Receipt Date: 20240704
  Transmission Date: 20241017
  Serious: Yes (Life-Threatening, Hospitalization)
  Sender: Public
  Company Number: None

PATIENT
  Age: 71 Year
  Sex: Female

DRUGS (12)
  1. DOXYCYCLINE [Suspect]
     Active Substance: DOXYCYCLINE\DOXYCYCLINE HYCLATE
     Indication: Perioral dermatitis
     Dosage: 100 MG ORAL
     Route: 048
  2. AMLODIPINE [Concomitant]
     Active Substance: AMLODIPINE BESYLATE
  3. LOVASTATIN [Concomitant]
     Active Substance: LOVASTATIN
  4. LEVOTHYROXINE [Concomitant]
     Active Substance: LEVOTHYROXINE\LEVOTHYROXINE SODIUM
  5. OMEPRAZOLE [Concomitant]
     Active Substance: OMEPRAZOLE
  6. LATANOPROSTENE BUNOD [Concomitant]
     Active Substance: LATANOPROSTENE BUNOD
  7. DORZOLAMIDE\TIMOLOL [Concomitant]
     Active Substance: DORZOLAMIDE\TIMOLOL
  8. LIFITEGRAST [Concomitant]
     Active Substance: LIFITEGRAST
  9. DOCUSATE [Concomitant]
     Active Substance: DOCUSATE
  10. CALCIUM\VITAMIN D [Concomitant]
     Active Substance: CALCIUM\VITAMIN D
  11. GLUCOSAMINE [Concomitant]
     Active Substance: GLUCOSAMINE
  12. MAGNESIUM [Concomitant]
     Active Substance: MAGNESIUM

REACTIONS (10)
  - Hypoglycaemia [None]
  - Asthenia [None]
  - Dizziness [None]
  - Loss of consciousness [None]
  - Urinary incontinence [None]
  - Therapy cessation [None]
  - Confusional state [None]
  - Vision blurred [None]
  - Troponin increased [None]
  - Seborrhoeic dermatitis [None]
